FAERS Safety Report 8102773-3 (Version None)
Quarter: 2012Q1

REPORT INFORMATION
  Report Type: 
  Country: None (occurrence: None)
  Receive Date: 20120201
  Receipt Date: 20120123
  Transmission Date: 20120608
  Serious: Yes (Other)
  Sender: FDA-Public Use
  Company Number: US-PFIZER INC-2010085412

PATIENT
  Sex: Female

DRUGS (2)
  1. DILANTIN [Suspect]
     Dosage: 150 MG, 2X/DAY
     Route: 048
     Dates: start: 20050202, end: 20050301
  2. DILANTIN [Suspect]
     Indication: CONVULSION
     Dosage: 750 MG, LOADING DOSE
     Route: 042
     Dates: start: 20050202

REACTIONS (1)
  - STEVENS-JOHNSON SYNDROME [None]
